FAERS Safety Report 9994657 (Version 1)
Quarter: 2014Q1

REPORT INFORMATION
  Report Type: Spontaneous
  Country: US (occurrence: None)
  Receive Date: 20140307
  Receipt Date: 20140307
  Transmission Date: 20141002
  Serious: Yes (Other)
  Sender: FDA-Public Use
  Company Number: None

PATIENT
  Age: 84 Year
  Sex: Female

DRUGS (4)
  1. REVLIMID [Suspect]
     Indication: PLASMA CELL MYELOMA
     Route: 048
  2. ATENOLOL [Concomitant]
  3. LOSARTAN [Concomitant]
  4. DECADRON [Concomitant]

REACTIONS (6)
  - Constipation [None]
  - Haematochezia [None]
  - Muscle spasms [None]
  - Dehydration [None]
  - Vision blurred [None]
  - Fatigue [None]
